FAERS Safety Report 5449723-6 (Version None)
Quarter: 2007Q3

REPORT INFORMATION
  Report Type: 
  Country: None (occurrence: None)
  Receive Date: 20070910
  Receipt Date: 20070828
  Transmission Date: 20080115
  Serious: Yes (Death)
  Sender: FDA-Public Use
  Company Number: 2006P1000413

PATIENT
  Age: 76 Year
  Sex: Female
  Weight: 80 kg

DRUGS (13)
  1. PLACEBO (PLACEBO) [Suspect]
     Indication: ACUTE MYOCARDIAL INFARCTION
     Dosage: 5 IU;X1;IV, 0.25 MG/KG;X1;IV
     Route: 042
     Dates: start: 20060808, end: 20060808
  2. PLACEBO (PLACEBO) [Suspect]
     Indication: ACUTE MYOCARDIAL INFARCTION
     Dosage: 5 IU;X1;IV, 0.25 MG/KG;X1;IV
     Route: 042
     Dates: start: 20060808, end: 20060808
  3. ABCIXIMAB (ABCIXIMAB) [Suspect]
     Indication: ACUTE MYOCARDIAL INFARCTION
     Dosage: 10 MG,X1; IV, 14.9 MG;XI; IV
     Route: 042
     Dates: start: 20060808, end: 20060808
  4. ABCIXIMAB (ABCIXIMAB) [Suspect]
     Indication: ACUTE MYOCARDIAL INFARCTION
     Dosage: 10 MG,X1; IV, 14.9 MG;XI; IV
     Route: 042
     Dates: start: 20060808, end: 20060808
  5. FUROSEMIDE [Concomitant]
  6. DOPAMINE HCL [Concomitant]
  7. AMIODARONE HCL [Concomitant]
  8. HYDROCHLORIDE [Concomitant]
  9. RAMIPRIL [Concomitant]
  10. GLYCERYL TRINITRATE [Concomitant]
  11. ASPIRIN [Concomitant]
  12. METOCLOPRAMIDE [Concomitant]
  13. HEPARIN [Concomitant]

REACTIONS (17)
  - ANGINA PECTORIS [None]
  - ANURIA [None]
  - ATRIAL FIBRILLATION [None]
  - ATRIAL FLUTTER [None]
  - BLOOD CREATININE INCREASED [None]
  - BLOOD POTASSIUM INCREASED [None]
  - BLOOD PRESSURE DECREASED [None]
  - CARDIAC FAILURE ACUTE [None]
  - CARDIAC FAILURE CONGESTIVE [None]
  - CARDIOGENIC SHOCK [None]
  - GINGIVAL BLEEDING [None]
  - HEART RATE INCREASED [None]
  - PULMONARY OEDEMA [None]
  - PUNCTURE SITE HAEMORRHAGE [None]
  - THROMBOCYTOPENIA [None]
  - TONGUE HAEMORRHAGE [None]
  - VENTRICULAR FIBRILLATION [None]
